FAERS Safety Report 10170440 (Version 1)
Quarter: 2014Q2

REPORT INFORMATION
  Report Type: Spontaneous
  Country: US (occurrence: US)
  Receive Date: 20140513
  Receipt Date: 20140513
  Transmission Date: 20141212
  Serious: Yes (Other)
  Sender: FDA-Public Use
  Company Number: US-ABBVIE-14P-163-1233831-00

PATIENT
  Sex: Male

DRUGS (1)
  1. ANDROGEL [Suspect]
     Indication: PRODUCT USED FOR UNKNOWN INDICATION
     Dates: start: 201206, end: 201403

REACTIONS (6)
  - Acute myocardial infarction [Unknown]
  - Cerebrovascular accident [Unknown]
  - Physical disability [Unknown]
  - Pain [Unknown]
  - Economic problem [Unknown]
  - Emotional disorder [Unknown]
